FAERS Safety Report 22082008 (Version 4)
Quarter: 2023Q2

REPORT INFORMATION
  Report Type: Spontaneous
  Country: FR (occurrence: FR)
  Receive Date: 20230310
  Receipt Date: 20230515
  Transmission Date: 20230721
  Serious: Yes (Hospitalization, Other)
  Sender: FDA-Public Use
  Company Number: None

PATIENT

DRUGS (12)
  1. TAFASITAMAB [Suspect]
     Active Substance: TAFASITAMAB
     Indication: Diffuse large B-cell lymphoma
     Dosage: 790 MILLIGRAM C1D1 (18JUL), C1D4 (21JUL), C1D8 (25JUL), C1D15 (01AUG), C1D22 1 DAYS (08AUG)
     Route: 042
     Dates: start: 20220708, end: 20220808
  2. TAFASITAMAB [Suspect]
     Active Substance: TAFASITAMAB
     Dosage: 790 MILLIGRAM C2D1 (16AUG), C2D8 (23AUG), C2D15 (30AUG), C2D22 (06SEP)
     Route: 042
     Dates: start: 20220816, end: 20220906
  3. TAFASITAMAB [Suspect]
     Active Substance: TAFASITAMAB
     Dosage: 790 MILLIGRAM C3D1 (13SEP), C3D8 (20SEP), C3D15 (27SEP), C3D22 (04OCT)
     Route: 042
     Dates: start: 20220913, end: 20221004
  4. TAFASITAMAB [Suspect]
     Active Substance: TAFASITAMAB
     Dosage: 770 MILLIGRAM C4D1 (11OCT), C4D8 (18OCT), C4D15 (25OCT), C4D22 NOT PERFORMED
     Route: 042
     Dates: start: 20221011, end: 20221025
  5. REVLIMID [Suspect]
     Active Substance: LENALIDOMIDE
     Indication: Diffuse large B-cell lymphoma
     Dosage: C3 D1 TO D21
     Route: 042
     Dates: start: 20220913, end: 20221003
  6. REVLIMID [Suspect]
     Active Substance: LENALIDOMIDE
     Dosage: C2 J1 TO J21
     Route: 048
     Dates: start: 20220816, end: 20220905
  7. REVLIMID [Suspect]
     Active Substance: LENALIDOMIDE
     Dosage: C2 D1 TO D21
     Route: 048
     Dates: start: 20220718, end: 20220807
  8. REVLIMID [Suspect]
     Active Substance: LENALIDOMIDE
     Dosage: C4 D1 TO D21
     Route: 042
     Dates: start: 20221011, end: 20221031
  9. VALACYCLOVIR HYDROCHLORIDE [Concomitant]
     Active Substance: VALACYCLOVIR HYDROCHLORIDE
     Indication: Opportunistic infection prophylaxis
     Dosage: 500 MILLIGRAM, QD
     Route: 048
  10. BACTRIM [Concomitant]
     Active Substance: SULFAMETHOXAZOLE\TRIMETHOPRIM
     Indication: Opportunistic infection prophylaxis
     Dosage: 3 DOSAGE FORM, WEEKLY
     Route: 048
  11. KARDEGIC [Concomitant]
     Active Substance: ASPIRIN DL-LYSINE
     Indication: Drug toxicity prophylaxis
     Dosage: 1 DOSAGE FORM, QD
     Route: 048
     Dates: start: 20220718, end: 20221031
  12. LEUCOVORIN CALCIUM [Concomitant]
     Active Substance: LEUCOVORIN CALCIUM
     Indication: Drug toxicity prophylaxis
     Dosage: 1 DOSAGE FORM, WEEKLY
     Route: 048

REACTIONS (6)
  - Pneumonia viral [Unknown]
  - Pneumonia pneumococcal [Unknown]
  - Malignant neoplasm progression [Unknown]
  - Pneumonia [Recovered/Resolved]
  - Pneumonia viral [Unknown]
  - Pneumonia pneumococcal [Unknown]

NARRATIVE: CASE EVENT DATE: 20221031
